FAERS Safety Report 4576965-4 (Version None)
Quarter: 2005Q1

REPORT INFORMATION
  Report Type: 
  Country: None (occurrence: None)
  Receive Date: 20050208
  Receipt Date: 20050126
  Transmission Date: 20050727
  Serious: Yes (Death, Disabling)
  Sender: FDA-Public Use
  Company Number: 2005BI002062

PATIENT
  Age: 56 Year
  Sex: Female

DRUGS (1)
  1. AMEVIVE [Suspect]
     Indication: PSORIASIS
     Dosage: 15 MG; QW; IM
     Route: 030
     Dates: start: 20030801, end: 20031001

REACTIONS (4)
  - DEAFNESS [None]
  - MALIGNANT MELANOMA [None]
  - METASTASIS [None]
  - PSORIASIS [None]
